FAERS Safety Report 8422581 (Version 3)
Quarter: 2013Q4

REPORT INFORMATION
  Report Type: Report from Study
  Country: GB (occurrence: GB)
  Receive Date: 20120223
  Receipt Date: 20131216
  Transmission Date: 20140711
  Serious: Yes (Death, Other)
  Sender: FDA-Public Use
  Company Number: GB-ROCHE-1040285

PATIENT
  Sex: 0

DRUGS (13)
  1. RITUXIMAB [Suspect]
     Indication: DIFFUSE LARGE B-CELL LYMPHOMA
     Route: 065
  2. RITUXIMAB [Suspect]
     Route: 065
  3. RITUXIMAB [Suspect]
     Route: 065
  4. CYCLOPHOSPHAMIDE [Suspect]
     Indication: DIFFUSE LARGE B-CELL LYMPHOMA
     Route: 042
  5. CYCLOPHOSPHAMIDE [Suspect]
     Route: 042
  6. PREDNISOLONE [Suspect]
     Indication: DIFFUSE LARGE B-CELL LYMPHOMA
     Route: 048
  7. PREDNISOLONE [Suspect]
     Route: 048
  8. DOXORUBICIN [Suspect]
     Indication: DIFFUSE LARGE B-CELL LYMPHOMA
     Route: 065
  9. DOXORUBICIN [Suspect]
     Route: 065
  10. VINCRISTINE [Suspect]
     Indication: DIFFUSE LARGE B-CELL LYMPHOMA
     Dosage: MAXIMUM DOSE 2 MG
     Route: 065
  11. VINCRISTINE [Suspect]
     Route: 065
  12. ALLOPURINOL [Concomitant]
     Route: 065
  13. CO-TRIMOXAZOLE [Concomitant]
     Route: 065

REACTIONS (14)
  - Completed suicide [Fatal]
  - Neutropenic sepsis [Fatal]
  - Sepsis [Fatal]
  - Renal failure [Fatal]
  - Multi-organ failure [Fatal]
  - Neutropenia [Unknown]
  - Thrombocytopenia [Unknown]
  - Infection [Unknown]
  - Cardiotoxicity [Unknown]
  - Nausea [Unknown]
  - Vomiting [Unknown]
  - Mucosal inflammation [Unknown]
  - Neurotoxicity [Unknown]
  - Febrile neutropenia [Unknown]
